FAERS Safety Report 24815279 (Version 1)
Quarter: 2025Q1

REPORT INFORMATION
  Report Type: Spontaneous
  Country: PL (occurrence: PL)
  Receive Date: 20250107
  Receipt Date: 20250107
  Transmission Date: 20250409
  Serious: Yes (Death, Other)
  Sender: FRESENIUS KABI
  Company Number: PL-ROCHE-10000161634

PATIENT
  Age: 57 Year
  Sex: Female

DRUGS (2)
  1. TOCILIZUMAB [Suspect]
     Active Substance: TOCILIZUMAB
     Indication: Follicular lymphoma
  2. GLOFITAMAB [Suspect]
     Active Substance: GLOFITAMAB
     Indication: Follicular lymphoma

REACTIONS (3)
  - Death [Fatal]
  - Sepsis [Unknown]
  - Therapy non-responder [Unknown]
